FAERS Safety Report 18249275 (Version 1)
Quarter: 2020Q3

REPORT INFORMATION
  Report Type: Spontaneous
  Country: GB (occurrence: GB)
  Receive Date: 20200910
  Receipt Date: 20200910
  Transmission Date: 20201103
  Serious: Yes (Hospitalization, Other)
  Sender: FDA-Public Use
  Company Number: GB-UCBSA-2020035675

PATIENT
  Age: 9 Year
  Sex: Male

DRUGS (7)
  1. SODIUM VALPROATE [Interacting]
     Active Substance: VALPROATE SODIUM
     Indication: EPILEPSY
     Dosage: 33 MILLIGRAM/KILOGRAM PER DAY
  2. LAMOTRIGINE. [Interacting]
     Active Substance: LAMOTRIGINE
     Indication: EPILEPSY
     Dosage: 2 MILLIGRAM/KOGRAM PER DAY
  3. LEVETIRACETAM. [Suspect]
     Active Substance: LEVETIRACETAM
     Indication: EPILEPSY
     Dosage: UNK
  4. PREDNISOLONE. [Concomitant]
     Active Substance: PREDNISOLONE
     Indication: EPILEPSY
     Dosage: UNK
  5. CLOBAZAM. [Interacting]
     Active Substance: CLOBAZAM
     Indication: EPILEPSY
     Dosage: 4.5 ILLIGRAM/KILOGRAM PER DAY
  6. ETHOSUXIMIDE. [Interacting]
     Active Substance: ETHOSUXIMIDE
     Indication: EPILEPSY
     Dosage: 33 MILLIGRAM/KILOGRAM PER DAY
  7. SODIUM VALPROATE [Interacting]
     Active Substance: VALPROATE SODIUM
     Dosage: 26 MILLIGRAM/KILOGRAM PER DAY

REACTIONS (10)
  - Toxicity to various agents [Recovered/Resolved]
  - Liver function test abnormal [Recovered/Resolved]
  - Drug interaction [Recovered/Resolved]
  - Coma blister [Recovered/Resolved]
  - Sweat gland disorder [Recovered/Resolved]
  - Blister [Recovered/Resolved]
  - Pneumonia [Recovered/Resolved]
  - Somnolence [Unknown]
  - Generalised oedema [Unknown]
  - Necrosis [Recovered/Resolved]
